FAERS Safety Report 6829418-4 (Version None)
Quarter: 2010Q3

REPORT INFORMATION
  Report Type: 
  Country: None (occurrence: None)
  Receive Date: 20100709
  Receipt Date: 20070306
  Transmission Date: 20110219
  Serious: No
  Sender: FDA-Public Use
  Company Number: US-PFIZER INC-2007015144

PATIENT
  Sex: Male
  Weight: 138.35 kg

DRUGS (16)
  1. CHANTIX [Suspect]
     Indication: EX-TOBACCO USER
     Dates: start: 20070201
  2. ISOSORBIDE [Concomitant]
  3. LIPITOR [Concomitant]
  4. TRICOR [Concomitant]
  5. AMARYL [Concomitant]
  6. AVANDIA [Concomitant]
  7. METFORMIN HCL [Concomitant]
  8. RISPERIDONE [Concomitant]
  9. DEPAKOTE [Concomitant]
  10. TEGRETOL [Concomitant]
  11. ACETYLSALICYLIC ACID [Concomitant]
  12. LASIX [Concomitant]
  13. BENADRYL [Concomitant]
  14. PAROXETINE HCL [Concomitant]
  15. FOSINOPRIL SODIUM [Concomitant]
  16. METOPROLOL [Concomitant]

REACTIONS (4)
  - DRUG WITHDRAWAL SYNDROME [None]
  - PALPITATIONS [None]
  - TOBACCO USER [None]
  - WEIGHT INCREASED [None]
